FAERS Safety Report 6708011-8 (Version None)
Quarter: 2010Q2

REPORT INFORMATION
  Report Type: 
  Country: None (occurrence: None)
  Receive Date: 20100503
  Receipt Date: 20091203
  Transmission Date: 20101027
  Serious: Yes (Other)
  Sender: FDA-Public Use
  Company Number: US-BAYER-200830222NA

PATIENT
  Age: 55 Year
  Sex: Female

DRUGS (2)
  1. BETASERON [Suspect]
     Indication: RELAPSING-REMITTING MULTIPLE SCLEROSIS
     Dosage: TOTAL DAILY DOSE: 8 MIU
     Route: 058
     Dates: end: 20091126
  2. BETASERON [Suspect]
     Dosage: TOTAL DAILY DOSE: 8 MIU
     Route: 058
     Dates: start: 19940426

REACTIONS (9)
  - BRADYPHRENIA [None]
  - HYPERSOMNIA [None]
  - HYPOAESTHESIA TEETH [None]
  - INFLUENZA [None]
  - INJECTION SITE INFECTION [None]
  - INJECTION SITE PAIN [None]
  - MEMORY IMPAIRMENT [None]
  - NAUSEA [None]
  - TRISMUS [None]
